FAERS Safety Report 10203277 (Version 1)
Quarter: 2014Q2

REPORT INFORMATION
  Report Type: Spontaneous
  Country: US (occurrence: US)
  Receive Date: 20140529
  Receipt Date: 20140529
  Transmission Date: 20141212
  Serious: Yes (Other)
  Sender: FDA-Public Use
  Company Number: US-BRISTOL-MYERS SQUIBB COMPANY-20788386

PATIENT
  Age: 90 Year
  Sex: Female
  Weight: 64.85 kg

DRUGS (6)
  1. ELIQUIS [Suspect]
     Dates: start: 201312
  2. LOPRESSOR [Concomitant]
  3. SYNTHROID [Concomitant]
  4. CARDIZEM [Concomitant]
  5. METOPROLOL [Concomitant]
  6. VITAMIN D [Concomitant]

REACTIONS (3)
  - Haemorrhage [Unknown]
  - Full blood count decreased [Unknown]
  - Mass [Unknown]
